FAERS Safety Report 19693672 (Version 1)
Quarter: 2021Q3

REPORT INFORMATION
  Report Type: Spontaneous
  Country: GB (occurrence: GB)
  Receive Date: 20210812
  Receipt Date: 20210812
  Transmission Date: 20211014
  Serious: Yes (Death, Hospitalization, Other)
  Sender: FDA-Public Use
  Company Number: GB-MYLANLABS-2021M1048944

PATIENT
  Age: 60 Year
  Sex: Male

DRUGS (1)
  1. CLOZARIL [Suspect]
     Active Substance: CLOZAPINE
     Indication: SCHIZOPHRENIA
     Dosage: 65/MG MORNING AND 125 MG EVENING DOSE
     Route: 048
     Dates: start: 20050315

REACTIONS (5)
  - Pneumonia [Unknown]
  - Neutrophil count increased [Unknown]
  - White blood cell count increased [Unknown]
  - Death [Fatal]
  - Constipation [Unknown]

NARRATIVE: CASE EVENT DATE: 20210808
